FAERS Safety Report 10170268 (Version 5)
Quarter: 2015Q3

REPORT INFORMATION
  Report Type: Spontaneous
  Country: US (occurrence: US)
  Receive Date: 20140513
  Receipt Date: 20150817
  Transmission Date: 20151125
  Serious: No
  Sender: FDA-Public Use
  Company Number: US-GILEAD-2014-0102200

PATIENT
  Age: 78 Year
  Sex: Female

DRUGS (5)
  1. LETAIRIS [Suspect]
     Active Substance: AMBRISENTAN
     Indication: CONNECTIVE TISSUE DISORDER
  2. LETAIRIS [Suspect]
     Active Substance: AMBRISENTAN
     Indication: PULMONARY HYPERTENSION
     Dosage: 5 MG, QD
     Route: 065
     Dates: start: 20120228
  3. LETAIRIS [Suspect]
     Active Substance: AMBRISENTAN
     Indication: COLLAGEN-VASCULAR DISEASE
  4. RIOCIGUAT [Concomitant]
     Active Substance: RIOCIGUAT
     Indication: PRODUCT USED FOR UNKNOWN INDICATION
     Dosage: UNK
     Route: 065
     Dates: end: 20140508
  5. LETAIRIS [Suspect]
     Active Substance: AMBRISENTAN
     Indication: SARCOIDOSIS

REACTIONS (4)
  - Dyspnoea [Unknown]
  - Hypotension [Unknown]
  - Headache [Unknown]
  - Peripheral swelling [Unknown]
